FAERS Safety Report 7096755-0 (Version None)
Quarter: 2010Q4

REPORT INFORMATION
  Report Type: 
  Country: None (occurrence: None)
  Receive Date: 20101111
  Receipt Date: 20091113
  Transmission Date: 20110411
  Serious: No
  Sender: FDA-Public Use
  Company Number: US-KINGPHARMUSA00001-K200901423

PATIENT
  Sex: Male
  Weight: 136.5 kg

DRUGS (5)
  1. ALTACE [Suspect]
     Indication: HYPERTENSION
     Dosage: 5 MG, QD
     Dates: start: 20060101, end: 20070101
  2. ALTACE [Suspect]
     Dosage: 10 MG, QD
     Dates: start: 20070101
  3. ACTOS [Concomitant]
  4. METFORMIN HYDROCHLORIDE [Concomitant]
  5. SIMCOR [Concomitant]

REACTIONS (2)
  - DRUG INEFFECTIVE [None]
  - HYPERTENSION [None]
